FAERS Safety Report 15978647 (Version 3)
Quarter: 2019Q1

REPORT INFORMATION
  Report Type: Spontaneous
  Country: KR (occurrence: KR)
  Receive Date: 20190219
  Receipt Date: 20190228
  Transmission Date: 20190418
  Serious: Yes (Death, Hospitalization, Other)
  Sender: FDA-Public Use
  Company Number: KR-009507513-1902KOR005713

PATIENT
  Sex: Female

DRUGS (26)
  1. FRAGMIN [Concomitant]
     Active Substance: DALTEPARIN SODIUM
     Dosage: QUANTITY 1, DAYS 15
     Dates: start: 20190103, end: 20190121
  2. DIFLUCAN [Concomitant]
     Active Substance: FLUCONAZOLE
     Dosage: QUANTITY 1, DAYS 2
     Dates: start: 20190116, end: 20190117
  3. BROPIUM [Concomitant]
     Dosage: QUANTITY 1, DAYS 1
     Dates: start: 20190103
  4. FRAGMIN [Concomitant]
     Active Substance: DALTEPARIN SODIUM
     Dosage: QUANTITY 1, DAY 1
     Dates: start: 20190102, end: 20190103
  5. FRAGMIN [Concomitant]
     Active Substance: DALTEPARIN SODIUM
     Dosage: QUANTITY 1, DAY 1
     Dates: start: 20190115, end: 20190115
  6. DIFLUCAN [Concomitant]
     Active Substance: FLUCONAZOLE
     Dosage: QUANTITY 1, DAY 1
     Dates: start: 20190115, end: 20190115
  7. DEXTROSE. [Concomitant]
     Active Substance: DEXTROSE
     Dosage: QUANTITY 1, DAYS 7
     Dates: start: 20190101, end: 20190107
  8. DEXTROSE. [Concomitant]
     Active Substance: DEXTROSE
     Dosage: QUANTITY 1, DAY 1
     Dates: start: 20190115, end: 20190115
  9. VALENTAC [Concomitant]
     Dosage: 75 MILLIGRAM, QUANTITY 1, DAY 1
     Dates: start: 20190107, end: 20190107
  10. LEUCOSTIM [Concomitant]
     Active Substance: FILGRASTIM
     Dosage: 150 MICROGRAM, QUANTITY 1, DAY 1
     Dates: start: 20190111, end: 20190111
  11. DEXTROSE. [Concomitant]
     Active Substance: DEXTROSE
     Dosage: QUANTITY 1, DAYS 7
     Dates: start: 20190108, end: 20190114
  12. KEYTRUDA [Suspect]
     Active Substance: PEMBROLIZUMAB
     Indication: OVARIAN CANCER
     Dosage: UNK
     Dates: start: 20190116
  13. LIDOCAINE HYDROCHLORIDE. [Concomitant]
     Active Substance: LIDOCAINE HYDROCHLORIDE
     Dosage: QUANTITY 1, DAYS 4
     Dates: start: 20190107, end: 20190114
  14. PENIRAMIN [Concomitant]
     Dosage: 5 MILLIGRAM, QUANTITY 1, DAYS 1
     Dates: start: 20190101, end: 20190102
  15. HARTMANN DEX CHOONGWAE [Concomitant]
     Dosage: 1000 MILLIGRAM, QUANTITY 1, DAY 1
     Dates: start: 20190115, end: 20190115
  16. DIFLUCAN [Concomitant]
     Active Substance: FLUCONAZOLE
     Dosage: QUANTITY 1, DAYS 7
     Dates: start: 20190108, end: 20190114
  17. DEXTROSE. [Concomitant]
     Active Substance: DEXTROSE
     Dosage: QUANTITY 1, DAYS 8
     Dates: start: 20190101, end: 20190110
  18. DEXTROSE. [Concomitant]
     Active Substance: DEXTROSE
     Dosage: QUANTITY 1, DAY 1
     Dates: start: 20190115, end: 20190115
  19. DEXTROSE. [Concomitant]
     Active Substance: DEXTROSE
     Dosage: QUANTITY 1, DAY 1
     Dates: start: 20190116, end: 20190116
  20. HARTMANN DEX CHOONGWAE [Concomitant]
     Dosage: 1000 MILLIGRAM, QUANTITY 1, DAYS 7
     Dates: start: 20190108, end: 20190114
  21. FRAGMIN [Concomitant]
     Active Substance: DALTEPARIN SODIUM
     Dosage: QUANTITY 1, DAYS 2
     Dates: start: 20190116, end: 20190117
  22. FRAGMIN [Concomitant]
     Active Substance: DALTEPARIN SODIUM
     Dosage: QUANTITY 1, DAYS 7
     Dates: start: 20190108, end: 20190114
  23. DIFLUCAN [Concomitant]
     Active Substance: FLUCONAZOLE
     Dosage: QUANTITY 1, DAYS 8
     Dates: start: 20190103, end: 20190120
  24. ALBUMIN HUMAN [Concomitant]
     Active Substance: ALBUMIN HUMAN
     Dosage: DOSE DESCRIPTION: QUANTITY 1, DAYS 1
     Dates: start: 20190107, end: 20190107
  25. DEXTROSE. [Concomitant]
     Active Substance: DEXTROSE
     Dosage: QUANTITY 1, DAYS 5
     Dates: start: 20190108, end: 20190114
  26. DEXTROSE. [Concomitant]
     Active Substance: DEXTROSE
     Dosage: QUANTITY 1, DAY 1
     Dates: start: 20190116, end: 20190116

REACTIONS (3)
  - Malignant neoplasm progression [Fatal]
  - Adverse event [Unknown]
  - Product use in unapproved indication [Unknown]

NARRATIVE: CASE EVENT DATE: 201901
